FAERS Safety Report 6494782-5 (Version None)
Quarter: 2009Q4

REPORT INFORMATION
  Report Type: 
  Country: None (occurrence: None)
  Receive Date: 20091214
  Receipt Date: 20090330
  Transmission Date: 20100525
  Serious: No
  Sender: FDA-Public Use
  Company Number: US-BRISTOL-MYERS SQUIBB COMPANY-14558902

PATIENT
  Age: 15 Year
  Sex: Female

DRUGS (1)
  1. ABILIFY [Suspect]
     Indication: BIPOLAR DISORDER
     Dosage: TAKING FOR FEW MONTHS. TAKEN IN THE EVENING 3MONTHS PRIOR,NOT TAKEN ON 21,22,23MAR09.
     Route: 048

REACTIONS (3)
  - ABDOMINAL PAIN UPPER [None]
  - EUPHORIC MOOD [None]
  - RESTLESSNESS [None]
